FAERS Safety Report 7938874-X (Version None)
Quarter: 2011Q4

REPORT INFORMATION
  Report Type: 
  Country: None (occurrence: None)
  Receive Date: 20111124
  Receipt Date: 20111114
  Transmission Date: 20120403
  Serious: Yes (Life-Threatening, Hospitalization)
  Sender: FDA-Public Use
  Company Number: DE-AMGEN-DEUCT2011018926

PATIENT
  Age: 55 Year
  Sex: Female

DRUGS (3)
  1. PREDNISOLONE [Concomitant]
     Dosage: 10 MG, 1X/DAY
  2. METHOTREXATE [Concomitant]
     Indication: RHEUMATOID ARTHRITIS
     Dosage: 15 MG, WEEKLY
     Route: 048
     Dates: start: 20100601, end: 20101211
  3. ETANERCEPT [Suspect]
     Indication: RHEUMATOID ARTHRITIS
     Dosage: 50 MG, UNK
     Dates: start: 20100301, end: 20101201

REACTIONS (3)
  - ATRIAL FIBRILLATION [None]
  - PERICARDIAL EFFUSION [None]
  - RHEUMATOID ARTHRITIS [None]
